FAERS Safety Report 7091688-8 (Version None)
Quarter: 2010Q4

REPORT INFORMATION
  Report Type: 
  Country: None (occurrence: None)
  Receive Date: 20101109
  Receipt Date: 20090806
  Transmission Date: 20110411
  Serious: No
  Sender: FDA-Public Use
  Company Number: US-KINGPHARMUSA00001-K200900974

PATIENT
  Sex: Female

DRUGS (10)
  1. FLECTOR [Suspect]
     Indication: MUSCULOSKELETAL PAIN
     Dosage: UNK
     Route: 061
     Dates: start: 20090617
  2. HYDROCHLOROTHIAZIDE [Concomitant]
     Dosage: UNK
  3. LIDODERM [Concomitant]
     Dosage: UNK
  4. LISINOPRIL [Concomitant]
     Dosage: UNK
  5. METFORMIN [Concomitant]
     Dosage: UNK
  6. NORTRIPTYLINE [Concomitant]
     Dosage: UNK
  7. PREVACID [Concomitant]
     Dosage: UNK
  8. PERCOCET [Concomitant]
     Dosage: UNK
  9. VITAMIN D [Concomitant]
     Dosage: UNK
  10. ZANAFLEX [Concomitant]
     Dosage: UNK

REACTIONS (1)
  - GASTROINTESTINAL DISORDER [None]
